FAERS Safety Report 17056965 (Version 1)
Quarter: 2019Q4

REPORT INFORMATION
  Report Type: Spontaneous
  Country: GB (occurrence: GB)
  Receive Date: 20191121
  Receipt Date: 20191121
  Transmission Date: 20200122
  Serious: Yes (Hospitalization)
  Sender: FDA-Public Use
  Company Number: GB-TEVA-2019-GB-1139126

PATIENT
  Age: 56 Year
  Sex: Female

DRUGS (18)
  1. METOCLOPRAMIDE. [Concomitant]
     Active Substance: METOCLOPRAMIDE
  2. RIVAROXABAN [Concomitant]
     Active Substance: RIVAROXABAN
  3. OXYCODONE [Concomitant]
     Active Substance: OXYCODONE
  4. PRAVASTATIN. [Concomitant]
     Active Substance: PRAVASTATIN
  5. FUROSEMIDE. [Concomitant]
     Active Substance: FUROSEMIDE
  6. BISOPROLOL [Suspect]
     Active Substance: BISOPROLOL
     Dosage: 10 MG
     Route: 065
  7. FLUTICASONE. [Concomitant]
     Active Substance: FLUTICASONE
  8. METFORMIN [Concomitant]
     Active Substance: METFORMIN HYDROCHLORIDE
  9. DIGOXIN. [Suspect]
     Active Substance: DIGOXIN
     Route: 065
  10. RABEPRAZOLE [Concomitant]
     Active Substance: RABEPRAZOLE
  11. QUININE [Concomitant]
     Active Substance: QUININE
  12. CYCLIZINE [Concomitant]
     Active Substance: CYCLIZINE
  13. SALBUTAMOL [Concomitant]
     Active Substance: ALBUTEROL
  14. CARBOCISTEINE [Concomitant]
     Active Substance: CARBOCYSTEINE
  15. RANITIDINE. [Concomitant]
     Active Substance: RANITIDINE
  16. NICOTINE. [Concomitant]
     Active Substance: NICOTINE
  17. SPIRONOLACTONE. [Concomitant]
     Active Substance: SPIRONOLACTONE
  18. MIRTAZAPINE. [Concomitant]
     Active Substance: MIRTAZAPINE

REACTIONS (4)
  - Vomiting [Unknown]
  - Atrial fibrillation [Recovered/Resolved]
  - Bradycardia [Recovered/Resolved]
  - Abdominal pain [Unknown]
